FAERS Safety Report 4439332-X (Version None)
Quarter: 2004Q3

REPORT INFORMATION
  Report Type: 
  Country: None (occurrence: None)
  Receive Date: 20040728
  Receipt Date: 20040423
  Transmission Date: 20050211
  Serious: No
  Sender: FDA-Public Use
  Company Number: USA040465870

PATIENT
  Age: 64 Year
  Sex: Male
  Weight: 95 kg

DRUGS (4)
  1. STRATTERA [Suspect]
     Indication: ATTENTION DEFICIT/HYPERACTIVITY DISORDER
     Dosage: 60 MG DAY
     Dates: start: 20040412
  2. SYNTHROID [Concomitant]
  3. NORVASC [Concomitant]
  4. LIPITOR [Concomitant]

REACTIONS (2)
  - ANOREXIA [None]
  - DISTURBANCE IN ATTENTION [None]
